FAERS Safety Report 5900259-5 (Version None)
Quarter: 2008Q3

REPORT INFORMATION
  Report Type: 
  Country: None (occurrence: None)
  Receive Date: 20080926
  Receipt Date: 20080922
  Transmission Date: 20090109
  Serious: Yes (Death, Other)
  Sender: FDA-Public Use
  Company Number: PHBS2008US05780

PATIENT
  Age: 55 Year
  Sex: Male

DRUGS (9)
  1. CYCLOSPORINE [Suspect]
     Indication: STEM CELL TRANSPLANT
  2. CYCLOSPORINE [Suspect]
     Indication: PROPHYLAXIS AGAINST GRAFT VERSUS HOST DISEASE
  3. PREDNISONE [Concomitant]
     Indication: STEM CELL TRANSPLANT
  4. PREDNISONE [Concomitant]
     Indication: PROPHYLAXIS AGAINST GRAFT VERSUS HOST DISEASE
  5. CYTOXAN [Concomitant]
  6. RADIATION TREATMENT [Concomitant]
     Dosage: TOTAL BODY IRRADIATION
  7. HEPARIN [Concomitant]
     Indication: THROMBOSIS PROPHYLAXIS
  8. ACYCLOVIR [Concomitant]
     Indication: INFECTION PROPHYLAXIS
  9. FLUCONAZOLE [Concomitant]
     Indication: ANTIFUNGAL PROPHYLAXIS

REACTIONS (2)
  - ENGRAFT FAILURE [None]
  - SEPSIS [None]
